FAERS Safety Report 11448837 (Version 2)
Quarter: 2015Q4

REPORT INFORMATION
  Report Type: Spontaneous
  Country: US (occurrence: US)
  Receive Date: 20150902
  Receipt Date: 20151012
  Transmission Date: 20160304
  Serious: No
  Sender: FDA-Public Use
  Company Number: US-GLAXOSMITHKLINE-A0892837A

PATIENT
  Age: 54 Year
  Sex: Female
  Weight: 88 kg

DRUGS (17)
  1. WELLBUTRIN [Concomitant]
     Active Substance: BUPROPION HYDROCHLORIDE
  2. LEVOTHYROXINE TABLET [Concomitant]
     Active Substance: LEVOTHYROXINE
  3. CHARCOAL [Concomitant]
     Active Substance: ACTIVATED CHARCOAL
  4. CORTAB [Concomitant]
  5. VALERIAN ROOT [Concomitant]
     Active Substance: VALERIAN
  6. TYLENOL WITH CODEINE [Concomitant]
     Active Substance: ACETAMINOPHEN\CODEINE PHOSPHATE
  7. AMLODIPINE + BENAZEPRIL [Concomitant]
     Active Substance: AMLODIPINE BESYLATE\BENAZEPRIL HYDROCHLORIDE
  8. ALEVE [Concomitant]
     Active Substance: NAPROXEN SODIUM
  9. LAMICTAL [Suspect]
     Active Substance: LAMOTRIGINE
     Indication: BIPOLAR DISORDER
     Route: 048
     Dates: start: 20101015, end: 20101028
  10. OXYCODONE [Concomitant]
     Active Substance: OXYCODONE
  11. NICOTINE TRANSDERMAL PATCH [Suspect]
     Active Substance: NICOTINE
     Indication: SMOKING CESSATION THERAPY
  12. LITHIUM. [Concomitant]
     Active Substance: LITHIUM
  13. DEPAKOTE [Concomitant]
     Active Substance: DIVALPROEX SODIUM
  14. LOTREL [Concomitant]
     Active Substance: AMLODIPINE BESYLATE\BENAZEPRIL HYDROCHLORIDE
  15. KLONOPIN [Concomitant]
     Active Substance: CLONAZEPAM
  16. RESTORIL [Concomitant]
     Active Substance: TEMAZEPAM
  17. CHLORPHENIRAMINE MALEATE. [Concomitant]
     Active Substance: CHLORPHENIRAMINE MALEATE

REACTIONS (3)
  - Impaired driving ability [Unknown]
  - Drug ineffective [Unknown]
  - Headache [Not Recovered/Not Resolved]

NARRATIVE: CASE EVENT DATE: 20101018
